FAERS Safety Report 6845629-6 (Version None)
Quarter: 2010Q3

REPORT INFORMATION
  Report Type: 
  Country: None (occurrence: None)
  Receive Date: 20100715
  Receipt Date: 20070828
  Transmission Date: 20110219
  Serious: No
  Sender: FDA-Public Use
  Company Number: US-PFIZER INC-2007072823

PATIENT
  Sex: Male
  Weight: 54.4 kg

DRUGS (2)
  1. CHANTIX [Suspect]
     Indication: SMOKING CESSATION THERAPY
     Dates: start: 20070801
  2. DRUG, UNSPECIFIED [Suspect]

REACTIONS (4)
  - CONSTIPATION [None]
  - PRURITUS [None]
  - RASH [None]
  - SOMNOLENCE [None]
